FAERS Safety Report 9522112 (Version 2)
Quarter: 2013Q4

REPORT INFORMATION
  Report Type: Spontaneous
  Country: US (occurrence: None)
  Receive Date: 20130911
  Receipt Date: 20131008
  Transmission Date: 20140711
  Serious: Yes (Death)
  Sender: FDA-Public Use
  Company Number: UTC-037334

PATIENT
  Age: 47 Year
  Sex: Male
  Weight: 105.4 kg

DRUGS (3)
  1. TYVASO [Suspect]
     Indication: COR PULMONALE CHRONIC
     Dosage: 288 MCG (72 MCG, 4 IN 1 D), INHALATION
     Route: 055
     Dates: start: 20130330, end: 2013
  2. COUMADIN (WARFARIN SODIUM) (UNKNOWN) [Concomitant]
  3. LETAIRIS (AMBRISENTAN) (UNKNOWN) [Concomitant]

REACTIONS (5)
  - Death [None]
  - Fall [None]
  - Cervical vertebral fracture [None]
  - Cor pulmonale chronic [None]
  - Condition aggravated [None]
